FAERS Safety Report 7291176-X (Version None)
Quarter: 2011Q1

REPORT INFORMATION
  Report Type: 
  Country: None (occurrence: None)
  Receive Date: 20110214
  Receipt Date: 20110202
  Transmission Date: 20110831
  Serious: Yes (Other)
  Sender: FDA-Public Use
  Company Number: RU-MERCK-1102USA00645

PATIENT
  Age: 78 Year
  Sex: Female

DRUGS (6)
  1. AMIODARONE HYDROCHLORIDE [Concomitant]
     Route: 065
  2. ENALAPRIL MALEATE [Concomitant]
     Route: 065
  3. INVANZ [Suspect]
     Route: 042
  4. AMLODAC [Concomitant]
     Route: 065
  5. DIGOXIN [Concomitant]
     Route: 065
  6. PEKTROL [Concomitant]
     Route: 065

REACTIONS (5)
  - VOMITING [None]
  - DIZZINESS [None]
  - PYREXIA [None]
  - HYPOTONIA [None]
  - NAUSEA [None]
